FAERS Safety Report 4969239-0 (Version None)
Quarter: 2006Q2

REPORT INFORMATION
  Report Type: 
  Country: None (occurrence: None)
  Receive Date: 20060405
  Receipt Date: 20060324
  Transmission Date: 20061013
  Serious: Yes (Other)
  Sender: FDA-Public Use
  Company Number: 2006041795

PATIENT
  Age: 60 Year
  Sex: Female
  Weight: 119.296 kg

DRUGS (8)
  1. NEURONTIN [Suspect]
     Indication: NEUROPATHY PERIPHERAL
     Dosage: 300 MG (100 MG, 3 IN 1 D), ORAL
     Route: 048
  2. GABAPENTIN [Suspect]
     Indication: NEUROPATHY PERIPHERAL
  3. LIPITOR (ATORVASTATIN) [Concomitant]
  4. FUROSEMIDE [Concomitant]
  5. TRAZODONE HCL [Concomitant]
  6. TEMAZEPAM [Concomitant]
  7. MIRTAZAPINE [Concomitant]
  8. TYLENOL PM (DIPHENHYDRAMINE, PARACETAMOL) [Concomitant]

REACTIONS (9)
  - ABASIA [None]
  - ARTHRALGIA [None]
  - ASTHENIA [None]
  - CHONDROPATHY [None]
  - DRUG INEFFECTIVE [None]
  - HYPOAESTHESIA [None]
  - OSTEOARTHRITIS [None]
  - PARAESTHESIA [None]
  - RESTLESS LEGS SYNDROME [None]
